FAERS Safety Report 5596559-1 (Version None)
Quarter: 2008Q1

REPORT INFORMATION
  Report Type: 
  Country: None (occurrence: None)
  Receive Date: 20080118
  Receipt Date: 20080107
  Transmission Date: 20080703
  Serious: Yes (Other)
  Sender: FDA-Public Use
  Company Number: US-PFIZER INC-2008002827

PATIENT
  Sex: Female
  Weight: 64.4 kg

DRUGS (15)
  1. CHANTIX [Suspect]
     Indication: SMOKING CESSATION THERAPY
  2. MORPHINE SULFATE [Concomitant]
     Indication: SCOLIOSIS
  3. PERCODAN [Concomitant]
     Indication: SCOLIOSIS
  4. FUROSEMIDE [Concomitant]
  5. CLONAZEPAM [Concomitant]
     Indication: NEUROPATHY PERIPHERAL
  6. NEURONTIN [Concomitant]
     Indication: NEUROPATHY PERIPHERAL
  7. NEXIUM [Concomitant]
     Indication: GASTROOESOPHAGEAL REFLUX DISEASE
  8. LEXAPRO [Concomitant]
     Indication: DEPRESSION
  9. HUMALOG [Concomitant]
     Indication: DIABETES MELLITUS
  10. LANTUS [Concomitant]
     Indication: DIABETES MELLITUS
  11. VITAMIN B-12 [Concomitant]
     Indication: ASTHENIA
     Dosage: DAILY DOSE:1500MCG
  12. MILK THISTLE [Concomitant]
     Indication: RENAL DISORDER
  13. PLAVIX [Concomitant]
  14. ASPIRIN [Concomitant]
  15. VITAMIN CAP [Concomitant]

REACTIONS (13)
  - ABNORMAL DREAMS [None]
  - BLOOD GLUCOSE INCREASED [None]
  - CONSTIPATION [None]
  - DEPRESSION [None]
  - DRUG INEFFECTIVE [None]
  - DRY MOUTH [None]
  - FLATULENCE [None]
  - INITIAL INSOMNIA [None]
  - LETHARGY [None]
  - NAUSEA [None]
  - RENAL FUNCTION TEST ABNORMAL [None]
  - THROMBOSIS [None]
  - VOMITING [None]
